FAERS Safety Report 21589491 (Version 1)
Quarter: 2022Q4

REPORT INFORMATION
  Report Type: Spontaneous
  Country: CN (occurrence: CN)
  Receive Date: 20221114
  Receipt Date: 20221114
  Transmission Date: 20230113
  Serious: Yes (Other)
  Sender: FDA-Public Use
  Company Number: CN-BAXTER-2022BAX024113

PATIENT
  Age: 47 Year
  Sex: Female

DRUGS (14)
  1. CYCLOPHOSPHAMIDE [Suspect]
     Active Substance: CYCLOPHOSPHAMIDE
     Indication: Burkitt^s lymphoma stage II
     Dosage: TWO COURSES OF HYPERCVAD-A
     Route: 065
     Dates: start: 2020, end: 2020
  2. CYCLOPHOSPHAMIDE [Suspect]
     Active Substance: CYCLOPHOSPHAMIDE
     Indication: Cervix carcinoma stage II
  3. VINCRISTINE [Suspect]
     Active Substance: VINCRISTINE
     Indication: Burkitt^s lymphoma stage II
     Dosage: TWO COURSES OF HYPERCVAD-A
     Route: 065
     Dates: start: 2020, end: 2020
  4. VINCRISTINE [Suspect]
     Active Substance: VINCRISTINE
     Indication: Cervix carcinoma stage II
  5. DOXORUBICIN [Suspect]
     Active Substance: DOXORUBICIN
     Indication: Burkitt^s lymphoma stage II
     Dosage: TWO COURSES OF HYPERCVAD-A
     Route: 065
     Dates: start: 2020, end: 2020
  6. DOXORUBICIN [Suspect]
     Active Substance: DOXORUBICIN
     Indication: Cervix carcinoma stage II
  7. DEXAMETHASONE [Suspect]
     Active Substance: DEXAMETHASONE
     Indication: Burkitt^s lymphoma stage II
     Dosage: TWO COURSES OF HYPERCVAD-A
     Route: 065
     Dates: start: 2020, end: 2020
  8. DEXAMETHASONE [Suspect]
     Active Substance: DEXAMETHASONE
     Indication: Cervix carcinoma stage II
  9. METHOTREXATE [Suspect]
     Active Substance: METHOTREXATE
     Indication: Burkitt^s lymphoma stage II
     Dosage: ONE COURSE OF HYPERCVAD-B
     Route: 065
     Dates: start: 2020, end: 2020
  10. METHOTREXATE [Suspect]
     Active Substance: METHOTREXATE
     Indication: Cervix carcinoma stage II
  11. CYTARABINE [Suspect]
     Active Substance: CYTARABINE
     Indication: Burkitt^s lymphoma stage II
     Dosage: ONE COURSE OF HYPERCVAD-B
     Route: 065
     Dates: start: 2020, end: 2020
  12. CYTARABINE [Suspect]
     Active Substance: CYTARABINE
     Indication: Cervix carcinoma stage II
  13. METHYLPREDNISOLONE [Suspect]
     Active Substance: METHYLPREDNISOLONE
     Indication: Burkitt^s lymphoma stage II
     Dosage: ONE COURSE OF HYPERCVAD-B
     Route: 065
     Dates: start: 2020, end: 2020
  14. METHYLPREDNISOLONE [Suspect]
     Active Substance: METHYLPREDNISOLONE
     Indication: Cervix carcinoma stage II

REACTIONS (4)
  - Malignant neoplasm progression [Unknown]
  - Vaginal haemorrhage [Unknown]
  - Agranulocytosis [Recovered/Resolved]
  - Henoch-Schonlein purpura [Recovered/Resolved]

NARRATIVE: CASE EVENT DATE: 20200101
